FAERS Safety Report 5353625-3 (Version None)
Quarter: 2007Q2

REPORT INFORMATION
  Report Type: 
  Country: None (occurrence: None)
  Receive Date: 20070608
  Receipt Date: 20070608
  Transmission Date: 20071010
  Serious: No
  Sender: FDA-Public Use
  Company Number: None

PATIENT
  Sex: Female
  Weight: 125.1928 kg

DRUGS (3)
  1. BUPROPION HCL [Suspect]
     Indication: MAJOR DEPRESSION
     Dosage: 150MG 1-X DAILY PO
     Route: 048
     Dates: start: 20070401
  2. BUSPAR [Concomitant]
  3. ZOLOFT [Concomitant]

REACTIONS (2)
  - OEDEMA MUCOSAL [None]
  - URTICARIA [None]
